FAERS Safety Report 11750145 (Version 1)
Quarter: 2015Q4

REPORT INFORMATION
  Report Type: Spontaneous
  Country: US (occurrence: US)
  Receive Date: 20151118
  Receipt Date: 20151118
  Transmission Date: 20160304
  Serious: No
  Sender: FDA-Public Use
  Company Number: US-BIOGENIDEC-2015BI141565

PATIENT
  Sex: Female

DRUGS (2)
  1. AVONEX [Suspect]
     Active Substance: INTERFERON BETA-1A
     Indication: MULTIPLE SCLEROSIS
     Route: 030
  2. AMPYRA [Concomitant]
     Active Substance: DALFAMPRIDINE

REACTIONS (8)
  - Pain [Unknown]
  - Influenza like illness [Unknown]
  - Vitamin D decreased [Unknown]
  - Fatigue [Unknown]
  - Hepatic enzyme increased [Unknown]
  - Frustration [Unknown]
  - Multiple sclerosis relapse [Unknown]
  - Headache [Unknown]
